FAERS Safety Report 6861131-X (Version None)
Quarter: 2010Q3

REPORT INFORMATION
  Report Type: 
  Country: None (occurrence: None)
  Receive Date: 20100720
  Receipt Date: 20100708
  Transmission Date: 20110219
  Serious: Yes (Other)
  Sender: FDA-Public Use
  Company Number: JP-PFIZER INC-2010085511

PATIENT

DRUGS (1)
  1. AZULFIDINE [Suspect]
     Route: 048

REACTIONS (2)
  - ENTEROCOLITIS [None]
  - HISTIOCYTOSIS HAEMATOPHAGIC [None]
